FAERS Safety Report 9814843 (Version 2)
Quarter: 2014Q4

REPORT INFORMATION
  Report Type: Spontaneous
  Country: US (occurrence: US)
  Receive Date: 20140113
  Receipt Date: 20141027
  Transmission Date: 20150529
  Serious: Yes (Hospitalization, Other)
  Sender: FDA-Public Use
  Company Number: US-GLAXOSMITHKLINE-A1056257A

PATIENT
  Sex: Female

DRUGS (1)
  1. ARIXTRA [Suspect]
     Active Substance: FONDAPARINUX SODIUM
     Indication: PROPHYLAXIS
     Dosage: 10 MG. UNKNOWN DOSING.
     Route: 065
     Dates: start: 20130216

REACTIONS (3)
  - Nervous system disorder [Unknown]
  - Neoplasm malignant [Unknown]
  - Chemotherapy [Unknown]
